FAERS Safety Report 14792072 (Version 1)
Quarter: 2018Q2

REPORT INFORMATION
  Report Type: Spontaneous
  Country: US (occurrence: US)
  Receive Date: 20180413
  Receipt Date: 20180413
  Transmission Date: 20180711
  Serious: No
  Sender: FDA-Public Use
  Company Number: None

PATIENT
  Age: 32 Year
  Sex: Male
  Weight: 79.65 kg

DRUGS (3)
  1. TRIAMCINOLONE ACETONIDE CREAP USP, 0.5% [Suspect]
     Active Substance: TRIAMCINOLONE ACETONIDE
     Indication: HYPERSENSITIVITY
     Dosage: ?          QUANTITY:0.52 OUNCE(S);?
     Route: 061
     Dates: start: 20180402, end: 20180413
  2. CETIRIZINE [Concomitant]
     Active Substance: CETIRIZINE HYDROCHLORIDE
  3. LORATADINE. [Concomitant]
     Active Substance: LORATADINE

REACTIONS (2)
  - Pain [None]
  - Contusion [None]

NARRATIVE: CASE EVENT DATE: 20180413
